FAERS Safety Report 16748039 (Version 2)
Quarter: 2019Q3

REPORT INFORMATION
  Report Type: Spontaneous
  Country: US (occurrence: US)
  Receive Date: 20190827
  Receipt Date: 20190906
  Transmission Date: 20191005
  Serious: Yes (Death, Life-Threatening, Hospitalization, Other)
  Sender: FDA-Public Use
  Company Number: US-SA-2019SA236573

PATIENT
  Age: 63 Year
  Sex: Female

DRUGS (6)
  1. TRASTUZUMAB. [Suspect]
     Active Substance: TRASTUZUMAB
     Indication: INVASIVE DUCTAL BREAST CARCINOMA
     Dosage: UNK UNK, QCY
     Dates: start: 201508
  2. IDARUBICIN [Suspect]
     Active Substance: IDARUBICIN
  3. PERTUZUMAB. [Suspect]
     Active Substance: PERTUZUMAB
     Indication: INVASIVE DUCTAL BREAST CARCINOMA
     Dosage: UNK UNK, QCY
     Dates: start: 201508
  4. DOCETAXEL. [Suspect]
     Active Substance: DOCETAXEL
     Indication: INVASIVE DUCTAL BREAST CARCINOMA
     Dosage: UNK UNK, QCY
     Dates: start: 201508
  5. CYTARABINE. [Suspect]
     Active Substance: CYTARABINE
  6. CARBOPLATIN. [Suspect]
     Active Substance: CARBOPLATIN
     Indication: INVASIVE DUCTAL BREAST CARCINOMA
     Dosage: UNK UNK, QCY
     Dates: start: 201508

REACTIONS (15)
  - Anaemia [Fatal]
  - Pallor [Fatal]
  - Tumour lysis syndrome [Fatal]
  - Thrombocytopenia [Fatal]
  - Granulocytes abnormal [Fatal]
  - Acidosis [Fatal]
  - Acute myeloid leukaemia [Fatal]
  - Fatigue [Fatal]
  - Petechiae [Fatal]
  - Respiratory failure [Fatal]
  - Leukocytosis [Fatal]
  - Acute kidney injury [Fatal]
  - General physical health deterioration [Fatal]
  - Chromosomal mutation [Unknown]
  - Myeloblast percentage increased [Fatal]

NARRATIVE: CASE EVENT DATE: 2017
